FAERS Safety Report 5127026-7 (Version None)
Quarter: 2006Q4

REPORT INFORMATION
  Report Type: 
  Country: None (occurrence: None)
  Receive Date: 20061013
  Receipt Date: 20061005
  Transmission Date: 20070319
  Serious: Yes (Hospitalization)
  Sender: FDA-Public Use
  Company Number: FR-GLAXOSMITHKLINE-B0441805A

PATIENT
  Age: 25 Year
  Sex: Female
  Weight: 48 kg

DRUGS (4)
  1. AUGMENTIN [Suspect]
     Dosage: 1G THREE TIMES PER DAY
     Route: 048
  2. LASIX [Concomitant]
     Indication: ESSENTIAL HYPERTENSION
     Dosage: 40MG PER DAY
     Route: 048
  3. CORTANCYL [Concomitant]
     Dosage: 7.5MG PER DAY
     Route: 048
  4. TRIATEC [Concomitant]
     Indication: ESSENTIAL HYPERTENSION
     Dosage: 5MG PER DAY
     Route: 048

REACTIONS (10)
  - CARDIAC DISORDER [None]
  - CYANOSIS [None]
  - DYSPEPSIA [None]
  - ELECTROCARDIOGRAM QRS COMPLEX PROLONGED [None]
  - ELECTROCARDIOGRAM T WAVE INVERSION [None]
  - HAEMATEMESIS [None]
  - HYPOKALAEMIA [None]
  - LOSS OF CONSCIOUSNESS [None]
  - MALAISE [None]
  - ULCER [None]
